FAERS Safety Report 5025768-5 (Version None)
Quarter: 2006Q2

REPORT INFORMATION
  Report Type: 
  Country: None (occurrence: None)
  Receive Date: 20060427
  Receipt Date: 20050303
  Transmission Date: 20061013
  Serious: Yes (Other)
  Sender: FDA-Public Use
  Company Number: 2004094880

PATIENT
  Age: 4 Year
  Sex: Female

DRUGS (2)
  1. ZITHROMAX [Suspect]
     Indication: COUGH
     Dosage: 80 MG (80 MG, 1 IN 1 D)
     Route: 048
     Dates: start: 20040801
  2. ZITHROMAX [Suspect]
     Indication: UPPER RESPIRATORY TRACT INFECTION
     Dosage: 80 MG (80 MG, 1 IN 1 D)
     Route: 048
     Dates: start: 20040801

REACTIONS (2)
  - DEAFNESS NEUROSENSORY [None]
  - UPPER RESPIRATORY TRACT INFECTION [None]
